FAERS Safety Report 21446527 (Version 1)
Quarter: 2022Q4

REPORT INFORMATION
  Report Type: Report from Study
  Country: CA (occurrence: CA)
  Receive Date: 20221012
  Receipt Date: 20221012
  Transmission Date: 20230112
  Serious: Yes (Other)
  Sender: FDA-Public Use
  Company Number: CA-GLAXOSMITHKLINE-CA2022GSK144999

PATIENT

DRUGS (2)
  1. FLUTICASONE PROPIONATE [Suspect]
     Active Substance: FLUTICASONE PROPIONATE
     Indication: Asthma
     Dosage: UNK
  2. BUDESONIDE [Suspect]
     Active Substance: BUDESONIDE
     Indication: Asthma
     Dosage: 1 MG, BID (ORAL VISCOUS)
     Route: 048

REACTIONS (10)
  - Adrenocortical insufficiency acute [Unknown]
  - Adrenal insufficiency [Unknown]
  - Stress [Unknown]
  - Meningitis viral [Unknown]
  - Upper respiratory tract infection [Unknown]
  - Headache [Unknown]
  - Pain [Unknown]
  - Asthenia [Unknown]
  - Hypotension [Unknown]
  - Drug ineffective [Unknown]

NARRATIVE: CASE EVENT DATE: 20160101
